FAERS Safety Report 6690131-8 (Version None)
Quarter: 2010Q2

REPORT INFORMATION
  Report Type: 
  Country: None (occurrence: None)
  Receive Date: 20100421
  Receipt Date: 20100416
  Transmission Date: 20101027
  Serious: Yes (Death, Hospitalization, Other)
  Sender: FDA-Public Use
  Company Number: PHEH2010US00958

PATIENT
  Sex: Female

DRUGS (7)
  1. EXJADE [Suspect]
     Dosage: 1500 MG, QD
     Route: 048
     Dates: start: 20090618
  2. EXJADE [Suspect]
     Dosage: 250 MG, SIX TIMES DAILY
     Dates: end: 20091206
  3. EXJADE [Suspect]
     Dosage: 1500 MG, QD
     Dates: start: 20100112
  4. SEROQUEL [Concomitant]
     Dosage: 75 MG, BID
     Route: 048
  5. FOLIC ACID [Concomitant]
     Dosage: 1 MG, QD
     Route: 048
  6. ZANTAC [Concomitant]
     Dosage: 150 MG, BID
     Route: 048
  7. DILANTIN [Concomitant]
     Dosage: 200 MG, BID
     Route: 042

REACTIONS (50)
  - ACTIVATED PARTIAL THROMBOPLASTIN TIME PROLONGED [None]
  - ASPIRATION [None]
  - ATELECTASIS [None]
  - ATROPHY [None]
  - BLOOD ALBUMIN DECREASED [None]
  - BLOOD CHLORIDE INCREASED [None]
  - BLOOD CREATINE PHOSPHOKINASE MB INCREASED [None]
  - BLOOD CREATININE INCREASED [None]
  - BLOOD GLUCOSE INCREASED [None]
  - BLOOD SODIUM INCREASED [None]
  - BLOOD UREA INCREASED [None]
  - CARBON DIOXIDE INCREASED [None]
  - CARDIAC FAILURE [None]
  - CARDIOMEGALY [None]
  - CHEST PAIN [None]
  - COUGH [None]
  - CRANIOTOMY [None]
  - DEATH [None]
  - ENCEPHALOMALACIA [None]
  - ENCEPHALOPATHY [None]
  - ESCHERICHIA INFECTION [None]
  - FUNGAL INFECTION [None]
  - HAEMATOCRIT DECREASED [None]
  - HAEMATURIA [None]
  - HAEMOGLOBIN DECREASED [None]
  - INFECTION [None]
  - INJURY [None]
  - INTERNATIONAL NORMALISED RATIO INCREASED [None]
  - LUNG DISORDER [None]
  - LUNG INFILTRATION [None]
  - MEAN PLATELET VOLUME INCREASED [None]
  - MENTAL STATUS CHANGES [None]
  - MONOCYTE COUNT INCREASED [None]
  - NEUTROPHIL COUNT INCREASED [None]
  - PLATELET COUNT DECREASED [None]
  - PLEURAL EFFUSION [None]
  - PNEUMONIA [None]
  - PROTEINURIA [None]
  - PROTHROMBIN TIME PROLONGED [None]
  - RED BLOOD CELL COUNT DECREASED [None]
  - RED CELL DISTRIBUTION WIDTH INCREASED [None]
  - RESPIRATORY FAILURE [None]
  - ROAD TRAFFIC ACCIDENT [None]
  - SEPSIS [None]
  - SINUSITIS [None]
  - TROPONIN T INCREASED [None]
  - URINARY TRACT INFECTION [None]
  - URINE ANALYSIS ABNORMAL [None]
  - URINE LEUKOCYTE ESTERASE POSITIVE [None]
  - WHITE BLOOD CELL COUNT INCREASED [None]
